FAERS Safety Report 20813642 (Version 2)
Quarter: 2022Q2

REPORT INFORMATION
  Report Type: Spontaneous
  Country: IE (occurrence: IE)
  Receive Date: 20220511
  Receipt Date: 20220615
  Transmission Date: 20220721
  Serious: Yes (Other)
  Sender: FDA-Public Use
  Company Number: IE-LUPIN PHARMACEUTICALS INC.-2022-06834

PATIENT
  Age: 88 Year
  Sex: Female

DRUGS (9)
  1. GABAPENTIN [Suspect]
     Active Substance: GABAPENTIN
     Indication: Neuropsychiatric symptoms
     Dosage: 100 MG, QD (100 MG (NOCTE))
     Route: 065
  2. MIRTAZAPINE [Suspect]
     Active Substance: MIRTAZAPINE
     Indication: Neuropsychiatric symptoms
     Dosage: 7.5 MG
     Route: 065
  3. MIRTAZAPINE [Suspect]
     Active Substance: MIRTAZAPINE
     Indication: Anxiolytic therapy
  4. MIRTAZAPINE [Suspect]
     Active Substance: MIRTAZAPINE
     Indication: Sedative therapy
  5. CITALOPRAM [Concomitant]
     Active Substance: CITALOPRAM HYDROBROMIDE
     Indication: Neuropsychiatric symptoms
     Dosage: 20 MG
     Route: 065
  6. ALPRAZOLAM [Concomitant]
     Active Substance: ALPRAZOLAM
     Indication: Anxiolytic therapy
     Dosage: 0.25 MG
     Route: 065
  7. ALPRAZOLAM [Concomitant]
     Active Substance: ALPRAZOLAM
     Indication: Neuropsychiatric symptoms
  8. ZOLPIDEM [Concomitant]
     Active Substance: ZOLPIDEM TARTRATE
     Indication: Neuropsychiatric symptoms
     Dosage: 5 MG
     Route: 065
  9. WARFARIN [Concomitant]
     Active Substance: WARFARIN
     Indication: Atrial fibrillation
     Dosage: UNK
     Route: 065

REACTIONS (3)
  - Myoclonus [Unknown]
  - Restless legs syndrome [Unknown]
  - Off label use [Unknown]
